FAERS Safety Report 18405513 (Version 2)
Quarter: 2020Q4

REPORT INFORMATION
  Report Type: Spontaneous
  Country: US (occurrence: US)
  Receive Date: 20201020
  Receipt Date: 20201028
  Transmission Date: 20210114
  Serious: No
  Sender: FDA-Public Use
  Company Number: US-TEVA-2020-US-1839236

PATIENT
  Sex: Male

DRUGS (1)
  1. ALBUTEROL SULFATE HFA,90 MCG TEVA [Suspect]
     Active Substance: ALBUTEROL SULFATE

REACTIONS (5)
  - Product taste abnormal [Unknown]
  - Device ineffective [Unknown]
  - Device delivery system issue [Unknown]
  - Device malfunction [Unknown]
  - Product quality issue [Unknown]
